FAERS Safety Report 24009302 (Version 1)
Quarter: 2024Q2

REPORT INFORMATION
  Report Type: Spontaneous
  Country: GB (occurrence: None)
  Receive Date: 20240625
  Receipt Date: 20240625
  Transmission Date: 20240717
  Serious: Yes (Other)
  Sender: FDA-Public Use
  Company Number: 2024A140162

PATIENT
  Age: 72 Year
  Sex: Female

DRUGS (3)
  1. FULVESTRANT [Suspect]
     Active Substance: FULVESTRANT
     Indication: Mastectomy
     Dosage: UNK
     Dates: start: 202102
  2. KISQALI [Suspect]
     Active Substance: RIBOCICLIB
     Indication: Mastectomy
     Dosage: UNK
     Route: 048
     Dates: start: 202102
  3. FEMARA [Suspect]
     Active Substance: LETROZOLE
     Indication: Mastectomy
     Dosage: UNK
     Route: 048

REACTIONS (4)
  - Neutropenia [Unknown]
  - Metastases to peritoneum [Unknown]
  - Interstitial lung disease [Recovered/Resolved]
  - Therapy partial responder [Unknown]

NARRATIVE: CASE EVENT DATE: 20210801
